FAERS Safety Report 7335419-2 (Version None)
Quarter: 2011Q1

REPORT INFORMATION
  Report Type: 
  Country: None (occurrence: None)
  Receive Date: 20110202
  Receipt Date: 20110202
  Transmission Date: 20110831
  Serious: Yes (Other)
  Sender: FDA-Public Use
  Company Number: None

PATIENT
  Sex: Female
  Weight: 72.5755 kg

DRUGS (1)
  1. JUNEL FE 1/20 [Suspect]
     Indication: MENSTRUATION IRREGULAR
     Dosage: 1/20 ONCE DAILY ORAL MID NOVEMBER 2010
     Route: 048

REACTIONS (6)
  - BREAST SWELLING [None]
  - PARAESTHESIA [None]
  - FEELING ABNORMAL [None]
  - WEIGHT FLUCTUATION [None]
  - GALACTORRHOEA [None]
  - INSOMNIA [None]
